FAERS Safety Report 8946944 (Version 2)
Quarter: 2012Q4

REPORT INFORMATION
  Report Type: 
  Country: CH (occurrence: CH)
  Receive Date: 20121205
  Receipt Date: 20121217
  Transmission Date: 20130627
  Serious: Yes (Death, Hospitalization, Other)
  Sender: FDA-Public Use
  Company Number: CH-PFIZER INC-2012302630

PATIENT
  Age: 70 Year
  Sex: Male

DRUGS (1)
  1. SUTENT [Suspect]
     Indication: METASTATIC RENAL CELL CARCINOMA
     Dosage: 50 mg, 1x/day
     Dates: start: 20070323

REACTIONS (16)
  - Death [Fatal]
  - Second primary malignancy [Unknown]
  - Prostate cancer [Unknown]
  - Loss of consciousness [Unknown]
  - Somnolence [Unknown]
  - Pupils unequal [Unknown]
  - Pancytopenia [Unknown]
  - Haemoglobin decreased [Unknown]
  - Platelet count decreased [Unknown]
  - Subdural haematoma [Unknown]
  - Epistaxis [Unknown]
  - Decreased appetite [Unknown]
  - Blood lactate dehydrogenase increased [Unknown]
  - Transaminases increased [Unknown]
  - Abdominal pain [Unknown]
  - Pain [Unknown]
